FAERS Safety Report 14024577 (Version 1)
Quarter: 2017Q3

REPORT INFORMATION
  Report Type: Report from Study
  Country: None (occurrence: FR)
  Receive Date: 20170928
  Receipt Date: 20170928
  Transmission Date: 20171128
  Serious: Yes (Other)
  Sender: FDA-Public Use
  Company Number: FR-ABBVIE-17P-056-2112184-00

PATIENT
  Age: 47 Year
  Sex: Male

DRUGS (1)
  1. VENCLYXTO [Suspect]
     Active Substance: VENETOCLAX
     Indication: CHRONIC LYMPHOCYTIC LEUKAEMIA
     Dosage: INITIATION PHASE UP TO 200 MG
     Route: 048
     Dates: start: 201706, end: 201707

REACTIONS (4)
  - Chronic lymphocytic leukaemia [Unknown]
  - General physical health deterioration [Unknown]
  - Neoplasm progression [Unknown]
  - Histiocytosis haematophagic [Unknown]

NARRATIVE: CASE EVENT DATE: 201707
